FAERS Safety Report 26173364 (Version 1)
Quarter: 2025Q4

REPORT INFORMATION
  Report Type: Spontaneous
  Country: US (occurrence: US)
  Receive Date: 20251218
  Receipt Date: 20251218
  Transmission Date: 20260118
  Serious: No
  Sender: MSN LABORATORIES PRIVATE LIMITED
  Company Number: US-MSNLABS-2025MSNSPO03786

PATIENT

DRUGS (2)
  1. FAMOTIDINE [Suspect]
     Active Substance: FAMOTIDINE
     Indication: Product used for unknown indication
     Route: 065
  2. FAMOTIDINE [Suspect]
     Active Substance: FAMOTIDINE

REACTIONS (2)
  - Product dose omission issue [Unknown]
  - Product colour issue [Unknown]
